FAERS Safety Report 8035833-6 (Version None)
Quarter: 2012Q1

REPORT INFORMATION
  Report Type: 
  Country: None (occurrence: None)
  Receive Date: 20120111
  Receipt Date: 20120111
  Transmission Date: 20120608
  Serious: Yes (Hospitalization)
  Sender: FDA-Public Use
  Company Number: None

PATIENT
  Sex: Female
  Weight: 57.152 kg

DRUGS (6)
  1. BUPROPION HYDROCHLORIDE [Concomitant]
  2. OMEPRAZOLE [Concomitant]
  3. LOSARTAN POTASSIUM [Suspect]
     Indication: RENAL FAILURE
     Dosage: 1
     Route: 048
     Dates: start: 20120109, end: 20120110
  4. LOSARTAN POTASSIUM [Suspect]
     Indication: HYPERTENSION
     Dosage: 1
     Route: 048
     Dates: start: 20120109, end: 20120110
  5. LEVOTHYROZINE [Concomitant]
  6. CLONIDINE [Concomitant]

REACTIONS (7)
  - OESOPHAGEAL PAIN [None]
  - PRODUCT SUBSTITUTION ISSUE [None]
  - THROAT IRRITATION [None]
  - HYPERSENSITIVITY [None]
  - FOOD INTERACTION [None]
  - DYSPEPSIA [None]
  - ORAL DISCOMFORT [None]
